FAERS Safety Report 25046611 (Version 3)
Quarter: 2025Q3

REPORT INFORMATION
  Report Type: Spontaneous
  Country: EU (occurrence: EU)
  Receive Date: 20250306
  Receipt Date: 20250814
  Transmission Date: 20251021
  Serious: Yes (Death, Hospitalization, Other)
  Sender: SANDOZ
  Company Number: EU-TAKEDA-2022TUS063666

PATIENT
  Age: 68 Year
  Sex: Male
  Weight: 82 kg

DRUGS (5)
  1. BRENTUXIMAB VEDOTIN [Suspect]
     Active Substance: BRENTUXIMAB VEDOTIN
     Indication: Cutaneous T-cell lymphoma
     Dosage: 133 MILLIGRAM, Q3WEEKS, START DATE: 20-APR-2022
     Route: 042
     Dates: end: 20220825
  2. CYCLOPHOSPHAMIDE [Suspect]
     Active Substance: CYCLOPHOSPHAMIDE
     Indication: Product used for unknown indication
     Route: 065
     Dates: end: 20220819
  3. DOXORUBICIN [Suspect]
     Active Substance: DOXORUBICIN
     Indication: Product used for unknown indication
     Route: 065
     Dates: end: 20220819
  4. ONCOVIN [Suspect]
     Active Substance: VINCRISTINE SULFATE
     Indication: Product used for unknown indication
     Route: 065
     Dates: end: 20220819
  5. PREDNISONE [Suspect]
     Active Substance: PREDNISONE
     Indication: Product used for unknown indication
     Route: 065
     Dates: end: 20220819

REACTIONS (26)
  - Death [Fatal]
  - Syncope [Recovered/Resolved]
  - Staphylococcal sepsis [Recovered/Resolved]
  - Pancytopenia [Recovered/Resolved]
  - Pyrexia [Recovering/Resolving]
  - Febrile neutropenia [Recovered/Resolved]
  - Pneumonia [Recovered/Resolved]
  - Thrombocytopenia [Recovering/Resolving]
  - Device related infection [Recovered/Resolved]
  - Frequent bowel movements [Recovered/Resolved]
  - Cardiovascular disorder [Recovered/Resolved]
  - Dehydration [Recovered/Resolved]
  - Haematuria [Recovered/Resolved]
  - Abscess [Recovered/Resolved]
  - Anaemia [Recovered/Resolved]
  - Anaemia macrocytic [Recovering/Resolving]
  - Blood albumin decreased [Recovering/Resolving]
  - Protein total decreased [Recovering/Resolving]
  - C-reactive protein increased [Recovering/Resolving]
  - Hypotonia [Recovering/Resolving]
  - Malaise [Recovering/Resolving]
  - Polyneuropathy [Not Recovered/Not Resolved]
  - Asthenia [Recovering/Resolving]
  - Peripheral sensorimotor neuropathy [Not Recovered/Not Resolved]
  - Oral candidiasis [Recovered/Resolved]
  - Drug ineffective [Unknown]

NARRATIVE: CASE EVENT DATE: 20220531
